FAERS Safety Report 7914114-2 (Version None)
Quarter: 2011Q4

REPORT INFORMATION
  Report Type: 
  Country: None (occurrence: None)
  Receive Date: 20111115
  Receipt Date: 20111108
  Transmission Date: 20120403
  Serious: Yes (Other)
  Sender: FDA-Public Use
  Company Number: HU-PFIZER INC-2011274113

PATIENT
  Age: 80 Year
  Sex: Female
  Weight: 73 kg

DRUGS (4)
  1. ATORVASTATIN CALCIUM [Suspect]
     Dosage: 40 MG, 1X/DAY
     Dates: start: 20110401, end: 20110529
  2. RAMIPRIL [Concomitant]
     Dosage: UNK
     Dates: end: 20110529
  3. METOPROLOL SUCCINATE [Concomitant]
     Dosage: UNK
     Dates: start: 19980101, end: 20110529
  4. LUCETAM [Concomitant]
     Dosage: UNK
     Dates: end: 20110529

REACTIONS (5)
  - PALATAL OEDEMA [None]
  - HYPERSENSITIVITY [None]
  - CHEILITIS [None]
  - CHOKING [None]
  - SWOLLEN TONGUE [None]
